FAERS Safety Report 6968933-X (Version None)
Quarter: 2010Q3

REPORT INFORMATION
  Report Type: 
  Country: None (occurrence: None)
  Receive Date: 20100907
  Receipt Date: 20100826
  Transmission Date: 20110219
  Serious: Yes (Hospitalization, Other)
  Sender: FDA-Public Use
  Company Number: US-PFIZER INC-2010094474

PATIENT
  Sex: Male

DRUGS (1)
  1. SUTENT [Suspect]
     Indication: METASTATIC RENAL CELL CARCINOMA
     Dosage: 50 MG, 1X/DAY, 4 WEEKS ON + 2 OFF
     Route: 048
     Dates: start: 20100706

REACTIONS (5)
  - CONSTIPATION [None]
  - DECREASED APPETITE [None]
  - HYPOGEUSIA [None]
  - RECTAL HAEMORRHAGE [None]
  - SUBCLAVIAN ARTERY THROMBOSIS [None]
